FAERS Safety Report 11335919 (Version 1)
Quarter: 2015Q3

REPORT INFORMATION
  Report Type: Spontaneous
  Country: US (occurrence: None)
  Receive Date: 20150731
  Receipt Date: 20150731
  Transmission Date: 20151125
  Serious: Yes (Hospitalization)
  Sender: FDA-Public Use
  Company Number: None

PATIENT
  Age: 68 Year
  Sex: Male
  Weight: 146.4 kg

DRUGS (1)
  1. WARFARIN [Suspect]
     Active Substance: WARFARIN
     Indication: ATRIAL FIBRILLATION
     Dosage: MG
     Route: 048
     Dates: start: 20110311, end: 20141220

REACTIONS (3)
  - Fall [None]
  - Anaemia [None]
  - Peritoneal haemorrhage [None]

NARRATIVE: CASE EVENT DATE: 20141220
